FAERS Safety Report 5910713-8 (Version None)
Quarter: 2008Q4

REPORT INFORMATION
  Report Type: 
  Country: None (occurrence: None)
  Receive Date: 20081006
  Receipt Date: 20081006
  Transmission Date: 20090506
  Serious: No
  Sender: FDA-Public Use
  Company Number: None

PATIENT
  Age: 82 Year
  Sex: Female
  Weight: 51.7101 kg

DRUGS (1)
  1. HYDROXYUREA [Suspect]
     Dosage: ONE CAPSULE DAILY PO
     Route: 048
     Dates: start: 20060619, end: 20081003

REACTIONS (3)
  - BACK PAIN [None]
  - MUSCULOSKELETAL PAIN [None]
  - PARAESTHESIA [None]
